FAERS Safety Report 18267311 (Version 2)
Quarter: 2020Q4

REPORT INFORMATION
  Report Type: Report from Study
  Country: US (occurrence: US)
  Receive Date: 20200915
  Receipt Date: 20201022
  Transmission Date: 20210113
  Serious: Yes (Hospitalization)
  Sender: FDA-Public Use
  Company Number: US-RETROPHIN, INC.-2020RTN00095

PATIENT
  Age: 0 Year
  Sex: Female
  Weight: 6.57 kg

DRUGS (8)
  1. PHENOBARBITAL. [Concomitant]
     Active Substance: PHENOBARBITAL
  2. NYSTATIN. [Concomitant]
     Active Substance: NYSTATIN
     Dosage: 1 DOSAGE UNITS, 2X/DAY
     Route: 061
  3. CHOLIC ACID [Suspect]
     Active Substance: CHOLIC ACID
     Dosage: 50 MG, 1X/DAY
     Route: 048
     Dates: start: 20200923
  4. ACETAMINOPHEN. [Concomitant]
     Active Substance: ACETAMINOPHEN
     Dosage: 1.5 ML, 4X/DAY (EVERY 6 HOURS) AS NEEDED
     Route: 048
  5. TRIAMCINOLONE [Concomitant]
     Active Substance: TRIAMCINOLONE
     Dosage: 1 DOSAGE UNITS, 2X/DAY
     Route: 061
  6. CHOLIC ACID [Suspect]
     Active Substance: CHOLIC ACID
     Indication: CEREBROHEPATORENAL SYNDROME
     Dosage: 50 MG, 1X/DAY
     Route: 048
     Dates: start: 20200414, end: 202008
  7. LEVETIRACETAM. [Concomitant]
     Active Substance: LEVETIRACETAM
     Dosage: 1 ML, 2X/DAY
     Route: 048
  8. MULTIVITAMIN WITH IRON [Concomitant]
     Active Substance: IRON\VITAMINS
     Dosage: 1 ML, 1X/DAY
     Route: 048

REACTIONS (8)
  - Product dose omission issue [Recovered/Resolved]
  - Diarrhoea [Recovering/Resolving]
  - Candida nappy rash [Recovering/Resolving]
  - Hypophosphataemia [Recovered/Resolved]
  - Gastrostomy tube site complication [Unknown]
  - Palatoplasty [Recovered/Resolved]
  - Staphylococcal bacteraemia [Recovered/Resolved]
  - Acute respiratory failure [Recovering/Resolving]

NARRATIVE: CASE EVENT DATE: 2020
